FAERS Safety Report 21982125 (Version 1)
Quarter: 2023Q1

REPORT INFORMATION
  Report Type: Spontaneous
  Country: JP (occurrence: JP)
  Receive Date: 20230213
  Receipt Date: 20230213
  Transmission Date: 20230417
  Serious: Yes (Other)
  Sender: FDA-Public Use
  Company Number: JP-SUN PHARMACEUTICAL INDUSTRIES LTD-2023R1-377379

PATIENT
  Age: 43 Year
  Sex: Female
  Weight: 49.7 kg

DRUGS (2)
  1. METHOTREXATE [Suspect]
     Active Substance: METHOTREXATE
     Indication: Rheumatoid arthritis
     Dosage: 8 MILLIGRAM, WEEKLY
     Route: 065
  2. INFLIXIMAB [Suspect]
     Active Substance: INFLIXIMAB
     Indication: Rheumatoid arthritis
     Dosage: 150 MILLIGRAM, DAILY
     Route: 065

REACTIONS (2)
  - Nephritis [Unknown]
  - Henoch-Schonlein purpura [Unknown]
